FAERS Safety Report 17291712 (Version 1)
Quarter: 2020Q1

REPORT INFORMATION
  Report Type: Spontaneous
  Country: US (occurrence: US)
  Receive Date: 20200118
  Receipt Date: 20200118
  Transmission Date: 20200409
  Serious: Yes (Disabling, Other)
  Sender: FDA-Public Use
  Company Number: None

PATIENT
  Age: 66 Year
  Sex: Female
  Weight: 67.95 kg

DRUGS (7)
  1. ESTRADIOL TOPICAL 0.01% WEEKLY [Concomitant]
  2. VITAMIN D3 2000 UNITS/DAY [Concomitant]
  3. ATORVASTATIN APO ATV20 [Suspect]
     Active Substance: ATORVASTATIN CALCIUM
     Indication: ARTERIOSCLEROSIS CORONARY ARTERY
     Route: 048
     Dates: start: 20190328, end: 20191121
  4. ELIQUIS [Concomitant]
     Active Substance: APIXABAN
  5. DUAL-CHAMBER PACEMAKER [Concomitant]
  6. PROLIA 60MG EVERY 6 MONTHS [Concomitant]
  7. ADVIL 200MG PRN [Concomitant]

REACTIONS (8)
  - Tremor [None]
  - Muscular weakness [None]
  - Anxiety [None]
  - Nightmare [None]
  - Myalgia [None]
  - Back pain [None]
  - Dysstasia [None]
  - Irritability [None]

NARRATIVE: CASE EVENT DATE: 20191010
